FAERS Safety Report 23533952 (Version 1)
Quarter: 2024Q1

REPORT INFORMATION
  Report Type: Spontaneous
  Country: CA (occurrence: CA)
  Receive Date: 20240216
  Receipt Date: 20240216
  Transmission Date: 20240410
  Serious: Yes (Hospitalization)
  Sender: FDA-Public Use
  Company Number: CA-Eisai-EC-2024-159514

PATIENT
  Age: 90 Year
  Sex: Female

DRUGS (3)
  1. ARICEPT [Suspect]
     Active Substance: DONEPEZIL HYDROCHLORIDE
     Indication: Dementia
     Route: 048
  2. ARICEPT [Suspect]
     Active Substance: DONEPEZIL HYDROCHLORIDE
     Dosage: RESTARTED 5MG AFTER STOPPING. 5MG FOR 3-4 WEEKS.
     Route: 048
  3. ARICEPT [Suspect]
     Active Substance: DONEPEZIL HYDROCHLORIDE
     Route: 048

REACTIONS (1)
  - Upper gastrointestinal haemorrhage [Unknown]

NARRATIVE: CASE EVENT DATE: 20220101
